FAERS Safety Report 4510032-0 (Version None)
Quarter: 2004Q4

REPORT INFORMATION
  Report Type: 
  Country: None (occurrence: None)
  Receive Date: 20041124
  Receipt Date: 20040823
  Transmission Date: 20050328
  Serious: Yes (Hospitalization)
  Sender: FDA-Public Use
  Company Number: PHHO2004FR11814

PATIENT
  Age: 60 Year
  Sex: Male
  Weight: 71 kg

DRUGS (2)
  1. NEORAL [Suspect]
     Indication: TRANSPLANT
     Dates: start: 20040715, end: 20040817
  2. NEORAL [Suspect]
     Dosage: 200 MG/DAILY
     Route: 048
     Dates: start: 20040818

REACTIONS (4)
  - BIOPSY KIDNEY ABNORMAL [None]
  - BLOOD CREATININE INCREASED [None]
  - CYST DRAINAGE [None]
  - LYMPHOCELE [None]
